FAERS Safety Report 14265413 (Version 1)
Quarter: 2017Q4

REPORT INFORMATION
  Report Type: Report from Study
  Country: US (occurrence: US)
  Receive Date: 20171208
  Receipt Date: 20171208
  Transmission Date: 20180321
  Serious: Yes (Other)
  Sender: FDA-Public Use
  Company Number: US-GILEAD-2017-0309015

PATIENT
  Age: 61 Year
  Sex: Male

DRUGS (17)
  1. FUROSEMIDE. [Concomitant]
     Active Substance: FUROSEMIDE
  2. PROMETHAZINE [Concomitant]
     Active Substance: PROMETHAZINE\PROMETHAZINE HYDROCHLORIDE
  3. PROPRANOLOL [Concomitant]
     Active Substance: PROPRANOLOL HYDROCHLORIDE
  4. XIFAXAN [Concomitant]
     Active Substance: RIFAXIMIN
  5. OMEPRAZOLE. [Concomitant]
     Active Substance: OMEPRAZOLE
  6. ALDACTONE [Concomitant]
     Active Substance: SPIRONOLACTONE
  7. COLACE [Concomitant]
     Active Substance: DOCUSATE SODIUM
  8. VITAMINS WITH MINERALS [Concomitant]
     Active Substance: MINERALS\VITAMINS
  9. MAG OXIDE [Concomitant]
     Active Substance: MAGNESIUM OXIDE
  10. FERROUS SULFATE. [Concomitant]
     Active Substance: FERROUS SULFATE
  11. LACTULOSE. [Concomitant]
     Active Substance: LACTULOSE
  12. TOPIRAMATE. [Concomitant]
     Active Substance: TOPIRAMATE
  13. LEDIPASVIR/SOFOSBUVIR [Suspect]
     Active Substance: LEDIPASVIR\SOFOSBUVIR
     Indication: CHRONIC HEPATITIS C
     Dosage: 1 DF, UNK
     Route: 065
     Dates: start: 20170829
  14. ASPIRIN                            /00002701/ [Concomitant]
     Active Substance: ASPIRIN
  15. VITAMIN D                          /00107901/ [Concomitant]
     Active Substance: ERGOCALCIFEROL
  16. ALEVE [Concomitant]
     Active Substance: NAPROXEN SODIUM
  17. FLUOXETINE [Concomitant]
     Active Substance: FLUOXETINE HYDROCHLORIDE

REACTIONS (1)
  - Diabetes mellitus [Unknown]
